FAERS Safety Report 7370223-0 (Version None)
Quarter: 2011Q1

REPORT INFORMATION
  Report Type: 
  Country: None (occurrence: None)
  Receive Date: 20110323
  Receipt Date: 20110121
  Transmission Date: 20110831
  Serious: Yes (Hospitalization)
  Sender: FDA-Public Use
  Company Number: US-ASTRAZENECA-2011SE03867

PATIENT
  Sex: Male

DRUGS (2)
  1. ZESTRIL [Suspect]
     Indication: HYPERTENSION
     Route: 048
  2. METOPROLOL [Suspect]
     Indication: ARRHYTHMIA
     Dosage: DAILY
     Route: 048

REACTIONS (1)
  - CEREBROVASCULAR ACCIDENT [None]
